FAERS Safety Report 5191200-4 (Version None)
Quarter: 2006Q4

REPORT INFORMATION
  Report Type: 
  Country: None (occurrence: None)
  Receive Date: 20061220
  Receipt Date: 20061220
  Transmission Date: 20070319
  Serious: Yes (Death, Life-Threatening, Hospitalization)
  Sender: FDA-Public Use
  Company Number: None

PATIENT
  Age: 68 Year
  Sex: Male
  Weight: 133.8 kg

DRUGS (15)
  1. ASPIRIN [Suspect]
     Indication: CORONARY ARTERY DISEASE
     Dosage: 325 MG  PO DAILY   CHRONIC
     Route: 048
  2. METHYLPREDNISOLONE [Suspect]
     Indication: LUMBAR RADICULOPATHY
     Dosage: 4 MG X 21  TWO COURSES MEDROL DOSEPAK
     Dates: start: 20060710
  3. ACIPHEX [Concomitant]
  4. METHYLPREDNISOLONE [Concomitant]
  5. LYRICA [Concomitant]
  6. OXYCODONE HCL [Concomitant]
  7. POTASSIUM CHLORIDE [Concomitant]
  8. ASPIRIN [Concomitant]
  9. NASONEX [Concomitant]
  10. ATENOLOL [Concomitant]
  11. PROBENECID [Concomitant]
  12. HYZAAR (ON HOLD) [Concomitant]
  13. CITALOPRAM [Concomitant]
  14. CEPHALEXIN [Concomitant]
  15. DOXAZOCIN (HOLD) [Concomitant]

REACTIONS (12)
  - ANAEMIA [None]
  - ANOXIC ENCEPHALOPATHY [None]
  - CARDIO-RESPIRATORY ARREST [None]
  - DEPRESSED LEVEL OF CONSCIOUSNESS [None]
  - DUODENAL ULCER [None]
  - HAEMORRHAGE [None]
  - HEART INJURY [None]
  - HYPOTENSION [None]
  - LETHARGY [None]
  - MELAENA [None]
  - SMALL INTESTINAL HAEMORRHAGE [None]
  - UPPER GASTROINTESTINAL HAEMORRHAGE [None]
